FAERS Safety Report 21345820 (Version 5)
Quarter: 2022Q4

REPORT INFORMATION
  Report Type: Report from Study
  Country: JP (occurrence: JP)
  Receive Date: 20220916
  Receipt Date: 20221115
  Transmission Date: 20230112
  Serious: Yes (Death)
  Sender: FDA-Public Use
  Company Number: JP-PFIZER INC-PV202200063734

PATIENT
  Age: 79 Year
  Sex: Male

DRUGS (17)
  1. NIRMATRELVIR\RITONAVIR [Suspect]
     Active Substance: NIRMATRELVIR\RITONAVIR
     Indication: COVID-19 treatment
     Dosage: [PF-07321332 150 MG]/[RITONAVIR 100 MG]; 2X/DAY
     Route: 048
     Dates: start: 20220813, end: 20220817
  2. CALONAL [Concomitant]
     Active Substance: ACETAMINOPHEN
     Indication: COVID-19
     Dosage: UNK
     Route: 048
     Dates: start: 20220813, end: 202208
  3. GENTAMICIN SULFATE [Concomitant]
     Active Substance: GENTAMICIN SULFATE
     Indication: Disease complication
     Dosage: UNK
     Route: 062
     Dates: start: 20220813, end: 202208
  4. PREDNISOLONE [Concomitant]
     Active Substance: PREDNISOLONE
     Indication: Disease complication
     Dosage: UNK
     Route: 048
     Dates: end: 202208
  5. SULFAMETHOXAZOLE\TRIMETHOPRIM [Concomitant]
     Active Substance: SULFAMETHOXAZOLE\TRIMETHOPRIM
     Indication: Disease complication
     Dosage: UNK
     Route: 048
     Dates: end: 202208
  6. ALENDRONATE SODIUM [Concomitant]
     Active Substance: ALENDRONATE SODIUM
     Indication: Disease complication
     Dosage: UNK
     Route: 048
     Dates: end: 202208
  7. SODIUM FERROUS CITRATE [Concomitant]
     Active Substance: SODIUM FERROUS CITRATE
     Indication: Disease complication
     Dosage: UNK
     Route: 048
     Dates: end: 202208
  8. SPIRONOLACTONE [Concomitant]
     Active Substance: SPIRONOLACTONE
     Indication: Disease complication
     Dosage: UNK
     Route: 048
     Dates: end: 202208
  9. FEBUXOSTAT [Concomitant]
     Active Substance: FEBUXOSTAT
     Indication: Disease complication
     Dosage: UNK
     Route: 048
     Dates: end: 202208
  10. URSODIOL [Concomitant]
     Active Substance: URSODIOL
     Indication: Disease complication
     Dosage: UNK
     Route: 048
     Dates: end: 202208
  11. VONOPRAZAN FUMARATE [Concomitant]
     Active Substance: VONOPRAZAN FUMARATE
     Indication: Disease complication
     Dosage: UNK
     Route: 048
     Dates: end: 202208
  12. BIFIDOBACTERIUM SPP. [Concomitant]
     Active Substance: BIFIDOBACTERIUM SPP.
     Indication: Disease complication
     Dosage: UNK
     Route: 048
     Dates: end: 202208
  13. CALCITRIOL [Concomitant]
     Active Substance: CALCITRIOL
     Indication: Disease complication
     Dosage: UNK
     Route: 048
     Dates: end: 202208
  14. LIVACT [ISOLEUCINE;LEUCINE;VALINE] [Concomitant]
     Indication: Disease complication
     Dosage: UNK
     Route: 048
     Dates: end: 202208
  15. SAMSCA [Concomitant]
     Active Substance: TOLVAPTAN
     Indication: Disease complication
     Dosage: UNK
     Route: 048
     Dates: end: 202208
  16. MAGNESIUM OXIDE [Concomitant]
     Active Substance: MAGNESIUM OXIDE
     Indication: Disease complication
     Dosage: UNK
     Route: 048
     Dates: end: 202208
  17. FUROSEMIDE [Concomitant]
     Active Substance: FUROSEMIDE
     Indication: Disease complication
     Dosage: UNK
     Route: 048
     Dates: end: 202208

REACTIONS (1)
  - Death [Fatal]

NARRATIVE: CASE EVENT DATE: 20220823
